FAERS Safety Report 17468988 (Version 2)
Quarter: 2020Q3

REPORT INFORMATION
  Report Type: Spontaneous
  Country: US (occurrence: US)
  Receive Date: 20200227
  Receipt Date: 20200807
  Transmission Date: 20201102
  Serious: No
  Sender: FDA-Public Use
  Company Number: US-AEGERION PHARMACEUTICAL, INC-AEGR004512

PATIENT
  Sex: Female
  Weight: 53.52 kg

DRUGS (1)
  1. MYALEPT [Suspect]
     Active Substance: METRELEPTIN
     Indication: LIPODYSTROPHY ACQUIRED
     Dosage: 5 MG (1 ML), QD
     Route: 058
     Dates: start: 20190906

REACTIONS (2)
  - Injection site bruising [Unknown]
  - Injection site induration [Unknown]

NARRATIVE: CASE EVENT DATE: 2019
